FAERS Safety Report 15995372 (Version 2)
Quarter: 2019Q2

REPORT INFORMATION
  Report Type: Spontaneous
  Country: US (occurrence: US)
  Receive Date: 20190222
  Receipt Date: 20190626
  Transmission Date: 20190711
  Serious: Yes (Other)
  Sender: FDA-Public Use
  Company Number: US-PFIZER INC-2019082144

PATIENT
  Age: 74 Year
  Sex: Male

DRUGS (24)
  1. NEXIUM [Suspect]
     Active Substance: ESOMEPRAZOLE MAGNESIUM
     Indication: GASTROOESOPHAGEAL REFLUX DISEASE
     Dosage: 40 MG, DAILY
     Dates: start: 20100312, end: 20120116
  2. NEXIUM 24HR [Suspect]
     Active Substance: ESOMEPRAZOLE MAGNESIUM
     Indication: GASTROOESOPHAGEAL REFLUX DISEASE
     Dosage: 20 MG, DAILY
  3. TRAMADOL. [Concomitant]
     Active Substance: TRAMADOL
     Dosage: UNK
  4. PREVACID [Suspect]
     Active Substance: LANSOPRAZOLE
     Indication: GASTROOESOPHAGEAL REFLUX DISEASE
     Dosage: 40 MG, DAILY
     Dates: start: 20040712, end: 20090415
  5. NEXIUM 24HR [Suspect]
     Active Substance: ESOMEPRAZOLE MAGNESIUM
     Indication: DYSPEPSIA
  6. PROTONIX [Suspect]
     Active Substance: PANTOPRAZOLE SODIUM
     Indication: DYSPEPSIA
     Dosage: 40 MG, DAILY
     Dates: start: 20120420, end: 20180517
  7. PRILOSEC OTC [Suspect]
     Active Substance: OMEPRAZOLE MAGNESIUM
     Dosage: 20 MG, DAILY
  8. LANSOPRAZOLE. [Suspect]
     Active Substance: LANSOPRAZOLE
     Dosage: UNK
  9. TETROFOSMIN. [Concomitant]
     Active Substance: TETROFOSMIN
     Dosage: UNK
  10. AMLODIPINE [Concomitant]
     Active Substance: AMLODIPINE BESYLATE
     Dosage: UNK
  11. DULAGLUTIDE. [Concomitant]
     Active Substance: DULAGLUTIDE
     Dosage: UNK
  12. NEXIUM [Suspect]
     Active Substance: ESOMEPRAZOLE MAGNESIUM
     Indication: DYSPEPSIA
  13. OMEPRAZOLE. [Suspect]
     Active Substance: OMEPRAZOLE
     Dosage: UNK
  14. PREVACID [Suspect]
     Active Substance: LANSOPRAZOLE
     Indication: DYSPEPSIA
  15. PRILOSEC [Suspect]
     Active Substance: OMEPRAZOLE MAGNESIUM
     Dosage: 40 MG, DAILY
  16. PANTOPRAZOLE [Suspect]
     Active Substance: PANTOPRAZOLE
     Indication: DYSPEPSIA
  17. PREVACID 24 HR [Suspect]
     Active Substance: LANSOPRAZOLE
     Dosage: 15 MG, DAILY
  18. ASPRIN [Concomitant]
     Active Substance: ASPIRIN
     Dosage: UNK
  19. ATORVASTATIN [Concomitant]
     Active Substance: ATORVASTATIN
     Dosage: UNK
  20. MELOXICAM. [Concomitant]
     Active Substance: MELOXICAM
     Dosage: UNK
  21. METOPROLOL. [Concomitant]
     Active Substance: METOPROLOL
     Dosage: UNK
  22. ESOMEPRAZOLE. [Suspect]
     Active Substance: ESOMEPRAZOLE MAGNESIUM
     Dosage: UNK
  23. PROTONIX [Suspect]
     Active Substance: PANTOPRAZOLE SODIUM
     Indication: GASTROOESOPHAGEAL REFLUX DISEASE
     Dosage: 40 MG, 1X/DAY
     Dates: start: 20120116, end: 20180531
  24. PANTOPRAZOLE [Suspect]
     Active Substance: PANTOPRAZOLE
     Indication: GASTROOESOPHAGEAL REFLUX DISEASE
     Dosage: 40 MG, DAILY

REACTIONS (1)
  - Chronic kidney disease [Not Recovered/Not Resolved]

NARRATIVE: CASE EVENT DATE: 20150728
